FAERS Safety Report 13156288 (Version 1)
Quarter: 2017Q1

REPORT INFORMATION
  Report Type: Spontaneous
  Country: FR (occurrence: FR)
  Receive Date: 20170126
  Receipt Date: 20170126
  Transmission Date: 20170428
  Serious: Yes (Hospitalization)
  Sender: FDA-Public Use
  Company Number: FR-PFIZER INC-2017027646

PATIENT
  Age: 44 Year
  Sex: Male
  Weight: 110 kg

DRUGS (2)
  1. INLYTA [Suspect]
     Active Substance: AXITINIB
     Dosage: 5 MG, 2X/DAY
  2. LOXEN /00639802/ [Concomitant]
     Active Substance: NICARDIPINE
     Indication: HYPERTENSION
     Dosage: UNK

REACTIONS (7)
  - Scar pain [Unknown]
  - Hypertension [Unknown]
  - Condition aggravated [Unknown]
  - Blood creatinine increased [Unknown]
  - Decreased immune responsiveness [Unknown]
  - Groin abscess [Unknown]
  - Haemoptysis [Unknown]
